FAERS Safety Report 9799084 (Version 2)
Quarter: 2014Q1

REPORT INFORMATION
  Report Type: Spontaneous
  Country: US (occurrence: US)
  Receive Date: 20140106
  Receipt Date: 20140106
  Transmission Date: 20141002
  Serious: Yes (Other)
  Sender: FDA-Public Use
  Company Number: US-GILEAD-2010-0033110

PATIENT
  Age: 52 Year
  Sex: Male
  Weight: 68.4 kg

DRUGS (8)
  1. LETAIRIS [Suspect]
     Indication: PULMONARY ARTERIAL HYPERTENSION
     Route: 048
     Dates: start: 20100916
  2. SILDENAFIL [Concomitant]
     Indication: PULMONARY ARTERIAL HYPERTENSION
  3. WARFARIN [Concomitant]
  4. FUROSEMIDE [Concomitant]
     Indication: RIGHT VENTRICULAR FAILURE
  5. SPIRONOLACTONE [Concomitant]
     Indication: RIGHT VENTRICULAR FAILURE
  6. BACTRIM DS [Concomitant]
  7. ATRIPLA [Concomitant]
     Indication: HIV INFECTION
  8. PANTOPRAZOLE [Concomitant]

REACTIONS (5)
  - Pharyngeal oedema [Recovered/Resolved]
  - Drug hypersensitivity [Recovered/Resolved]
  - Flushing [Recovered/Resolved]
  - Lip swelling [Recovered/Resolved]
  - Swelling face [Recovered/Resolved]
